FAERS Safety Report 4726252-6 (Version None)
Quarter: 2005Q3

REPORT INFORMATION
  Report Type: 
  Country: None (occurrence: None)
  Receive Date: 20050725
  Receipt Date: 20050712
  Transmission Date: 20060218
  Serious: Yes (Life-Threatening, Hospitalization)
  Sender: FDA-Public Use
  Company Number: HQWYE203614JUL05

PATIENT
  Age: 4 Year
  Sex: Male

DRUGS (6)
  1. CHILDREN'S ADVIL [Suspect]
     Indication: PYREXIA
     Dosage: OCCASIONALLY     ORAL
     Route: 048
     Dates: start: 20050224
  2. BETAMETHASONE [Suspect]
     Indication: HYPERSENSITIVITY
     Dosage: ORAL
     Route: 048
     Dates: start: 20050212, end: 20050213
  3. CLARITIN [Suspect]
     Dosage: 0.1 G/100 ML SYRUP
  4. DOLIPRANE (PARACETAMOL) [Suspect]
     Indication: PYREXIA
     Dosage: 300 MG SUPPOSITORY
     Route: 054
     Dates: start: 20050224
  5. OZOTHIN (TERPIN HYDRATE/TURPENTINE OIL0 [Suspect]
     Route: 054
     Dates: start: 20050224, end: 20050228
  6. RHINOTROPHYL (ETHANOLAMINE TENOATE/FRAMYCETIN SULFATE) [Suspect]
     Dosage: NASAL
     Route: 045
     Dates: start: 20050224, end: 20050228

REACTIONS (2)
  - BONE MARROW DEPRESSION [None]
  - IDIOPATHIC THROMBOCYTOPENIC PURPURA [None]
